FAERS Safety Report 7445259-1 (Version None)
Quarter: 2011Q2

REPORT INFORMATION
  Report Type: 
  Country: None (occurrence: None)
  Receive Date: 20110420
  Receipt Date: 20110412
  Transmission Date: 20111010
  Serious: Yes (Other)
  Sender: FDA-Public Use
  Company Number: 1000020129

PATIENT
  Age: 76 Year
  Sex: Female
  Weight: 42 kg

DRUGS (5)
  1. FENOFIBRATE (F'ENOFIBRATE) (TABLETS) (FENOFIBRATE) [Concomitant]
  2. MEMANTINE [Suspect]
     Indication: DEMENTIA ALZHEIMER'S TYPE
     Dosage: 10 MG (10 MG,1 IN 1 D),ORAL
     Route: 048
  3. MEMANTINE [Suspect]
     Dosage: 20 MG (20 MG, 1  IN 1 D),ORAL, 10 MG (10 MG, 1 IN 1 D)  ORAL
     Route: 048
     Dates: start: 20101201, end: 20110103
  4. CACIT VITAMINE D3 (CALCIUM CARBONATE, COLECALCIFEROL)(TABLETS)(CALCIUM [Concomitant]
  5. MODUCREN (AMILORIDE HYDROCHLORIDE, TIMOLOL MALEATE, HYDROCHLOROTHIAZID [Concomitant]

REACTIONS (3)
  - ABNORMAL BEHAVIOUR [None]
  - HALLUCINATION, VISUAL [None]
  - DEPRESSION [None]
